FAERS Safety Report 6058726-2 (Version None)
Quarter: 2009Q1

REPORT INFORMATION
  Report Type: 
  Country: None (occurrence: None)
  Receive Date: 20090130
  Receipt Date: 20090121
  Transmission Date: 20090719
  Serious: Yes (Other)
  Sender: FDA-Public Use
  Company Number: IT-TEVA-184325ISR

PATIENT
  Age: 61 Year
  Sex: Female

DRUGS (4)
  1. DOXORUBICIN HCL [Suspect]
  2. BLEOMYCIN SULFATE [Suspect]
  3. VINBLASTINE [Suspect]
  4. DACARBAZINE [Suspect]

REACTIONS (1)
  - INTERSTITIAL LUNG DISEASE [None]
